FAERS Safety Report 7878597-9 (Version None)
Quarter: 2011Q4

REPORT INFORMATION
  Report Type: 
  Country: None (occurrence: None)
  Receive Date: 20111101
  Receipt Date: 20111101
  Transmission Date: 20120403
  Serious: Yes (Hospitalization)
  Sender: FDA-Public Use
  Company Number: None

PATIENT
  Age: 71 Year
  Sex: Female
  Weight: 114 kg

DRUGS (22)
  1. INSULIN, LISPRO SLIDING SCALE. [Concomitant]
  2. NITROGLYCERIN [Concomitant]
     Route: 060
  3. TRIAMCINOLONE [Concomitant]
     Route: 061
  4. VICODIN [Concomitant]
     Route: 048
  5. DABIGATRAN [Suspect]
     Indication: ATRIAL FIBRILLATION
     Dosage: 1 CAP
     Route: 048
  6. XANAX [Concomitant]
     Route: 048
  7. BACTROBAN 2% [Concomitant]
     Route: 061
  8. LIPITOR [Concomitant]
     Route: 048
  9. MULTI-VITAMIN [Concomitant]
     Route: 048
  10. LASIX [Concomitant]
     Route: 048
  11. VITAMIN D 2000 INTERNATIONAL UNITS [Concomitant]
     Route: 048
  12. NEXIUM [Concomitant]
     Route: 048
  13. ASPIRIN [Concomitant]
     Route: 048
  14. PRADAXA [Concomitant]
     Route: 048
  15. FISH OIL [Concomitant]
     Route: 048
  16. SKELAXIN [Concomitant]
     Route: 048
  17. LANTUS [Concomitant]
     Route: 058
  18. COREG [Concomitant]
     Route: 048
  19. PLAVIX [Concomitant]
     Route: 048
  20. ZESTRIL [Concomitant]
     Route: 048
  21. WELLBUTRIN [Concomitant]
     Route: 048
  22. ALLOPURINOL [Concomitant]
     Route: 048

REACTIONS (2)
  - CEREBROVASCULAR ACCIDENT [None]
  - ATRIAL FIBRILLATION [None]
